FAERS Safety Report 8229573-8 (Version None)
Quarter: 2012Q1

REPORT INFORMATION
  Report Type: 
  Country: None (occurrence: None)
  Receive Date: 20120322
  Receipt Date: 20120315
  Transmission Date: 20120608
  Serious: Yes (Hospitalization)
  Sender: FDA-Public Use
  Company Number: PHHY2012FR022987

PATIENT

DRUGS (5)
  1. CANNABIS [Suspect]
  2. HYDROCORTISONE [Concomitant]
     Indication: BREAST OEDEMA
  3. BEVACIZUMAB [Suspect]
     Indication: BREAST CANCER
  4. FLUOXETINE [Suspect]
     Indication: DEPRESSION
  5. CARBOPLATIN [Concomitant]
     Indication: BREAST CANCER

REACTIONS (6)
  - PHOTOPHOBIA [None]
  - CEREBRAL VASOCONSTRICTION [None]
  - CEREBRAL ARTERY STENOSIS [None]
  - HEADACHE [None]
  - NAUSEA [None]
  - VOMITING [None]
